FAERS Safety Report 23291519 (Version 1)
Quarter: 2023Q4

REPORT INFORMATION
  Report Type: Spontaneous
  Country: US (occurrence: US)
  Receive Date: 20231213
  Receipt Date: 20231213
  Transmission Date: 20240109
  Serious: No
  Sender: FDA-Public Use
  Company Number: US-GSKCCFUS-Case-01861135_AE-103926

PATIENT
  Age: 53 Year
  Sex: Male

DRUGS (1)
  1. NUCALA [Suspect]
     Active Substance: MEPOLIZUMAB
     Indication: Asthma
     Dosage: 100 MG, MO
     Route: 058

REACTIONS (9)
  - Nasal congestion [Recovered/Resolved]
  - Nausea [Recovered/Resolved]
  - Feeling abnormal [Recovered/Resolved]
  - Headache [Unknown]
  - Abdominal pain upper [Unknown]
  - Eye irritation [Unknown]
  - Urticaria [Unknown]
  - Chills [Unknown]
  - Insomnia [Unknown]

NARRATIVE: CASE EVENT DATE: 20231001
